FAERS Safety Report 7094378-0 (Version None)
Quarter: 2010Q4

REPORT INFORMATION
  Report Type: 
  Country: None (occurrence: None)
  Receive Date: 20101110
  Receipt Date: 20101027
  Transmission Date: 20110411
  Serious: Yes (Hospitalization)
  Sender: FDA-Public Use
  Company Number: IT-TYCO HEALTHCARE/MALLINCKRODT-T201002218

PATIENT
  Sex: Female

DRUGS (7)
  1. EXALGO [Suspect]
     Dosage: 8 MG, QD
     Route: 048
     Dates: start: 20100401, end: 20100628
  2. GABAPENTIN [Concomitant]
  3. BISOPROLOL [Concomitant]
  4. EUTIROX                            /00068001/ [Concomitant]
     Dosage: 25 UG
  5. LASIX [Concomitant]
     Dosage: 25 MG, UNK
  6. COUMADIN [Concomitant]
     Dosage: 5 MG, UNK
  7. PARIET [Concomitant]
     Dosage: 20 MG, UNK

REACTIONS (4)
  - DYSARTHRIA [None]
  - LOSS OF CONSCIOUSNESS [None]
  - OEDEMA PERIPHERAL [None]
  - VERTIGO [None]
